FAERS Safety Report 12778217 (Version 2)
Quarter: 2016Q4

REPORT INFORMATION
  Report Type: Report from Study
  Country: None (occurrence: US)
  Receive Date: 20160925
  Receipt Date: 20161118
  Transmission Date: 20170207
  Serious: Yes (Hospitalization, Other)
  Sender: FDA-Public Use
  Company Number: US-ABBVIE-16K-163-1734760-00

PATIENT
  Age: 78 Year
  Sex: Female

DRUGS (1)
  1. HUMIRA [Suspect]
     Active Substance: ADALIMUMAB
     Indication: CROHN^S DISEASE
     Route: 058
     Dates: start: 2011, end: 2016

REACTIONS (19)
  - Dizziness [Unknown]
  - Nausea [Unknown]
  - Atrial fibrillation [Unknown]
  - Syncope [Unknown]
  - Vomiting [Recovered/Resolved]
  - Dementia [Not Recovered/Not Resolved]
  - Personality change [Not Recovered/Not Resolved]
  - Musculoskeletal disorder [Recovered/Resolved]
  - Weight decreased [Not Recovered/Not Resolved]
  - Dysarthria [Recovered/Resolved]
  - Cardiovascular disorder [Unknown]
  - Wrong technique in product usage process [Recovered/Resolved]
  - Malaise [Not Recovered/Not Resolved]
  - Dysphagia [Not Recovered/Not Resolved]
  - Vomiting [Unknown]
  - Transient ischaemic attack [Recovered/Resolved]
  - Delirium [Recovered/Resolved]
  - Incorrect dose administered [Recovered/Resolved]
  - Facial paralysis [Recovered/Resolved]

NARRATIVE: CASE EVENT DATE: 201607
